FAERS Safety Report 5266703-4 (Version None)
Quarter: 2007Q1

REPORT INFORMATION
  Report Type: 
  Country: None (occurrence: None)
  Receive Date: 20070315
  Receipt Date: 20070312
  Transmission Date: 20070707
  Serious: Yes (Hospitalization)
  Sender: FDA-Public Use
  Company Number: AT-MERCK-0703AUT00012

PATIENT

DRUGS (2)
  1. SINGULAIR [Suspect]
     Route: 048
     Dates: end: 20050101
  2. [COMPOSITION UNSPECIFIED] [Concomitant]
     Route: 065

REACTIONS (1)
  - ALLERGIC GRANULOMATOUS ANGIITIS [None]
